FAERS Safety Report 18180606 (Version 1)
Quarter: 2020Q3

REPORT INFORMATION
  Report Type: Report from Study
  Country: US (occurrence: US)
  Receive Date: 20200821
  Receipt Date: 20200821
  Transmission Date: 20201103
  Serious: Yes (Other)
  Sender: FDA-Public Use
  Company Number: US-TEVA-2020-US-1817338

PATIENT
  Age: 55 Year
  Sex: Female
  Weight: 77.11 kg

DRUGS (15)
  1. SYNTHROID [Concomitant]
     Active Substance: LEVOTHYROXINE SODIUM
  2. PROMETHAZINE 50MG [Concomitant]
  3. LISINOPRIL 10MG [Concomitant]
     Active Substance: LISINOPRIL
  4. CLONAZEPAM 0.5MG [Concomitant]
     Active Substance: CLONAZEPAM
  5. DEPLIN 7.5MG CAPSULE [Concomitant]
  6. VENTOLIN HFA INHALER [Concomitant]
  7. AUSTEDO [Suspect]
     Active Substance: DEUTETRABENAZINE
     Indication: TARDIVE DYSKINESIA
     Dosage: 12 MILLIGRAM DAILY;
     Route: 048
     Dates: start: 20200521
  8. DICLOFENAC 75MG DR [Concomitant]
  9. AUSTEDO [Suspect]
     Active Substance: DEUTETRABENAZINE
     Dosage: 24 MILLIGRAM DAILY; AS MAINTENANCE DOSE
     Route: 048
  10. LITHIUM ER 300MG [Concomitant]
  11. AUSTEDO [Suspect]
     Active Substance: DEUTETRABENAZINE
     Dosage: 18 MILLIGRAM DAILY;
     Route: 048
  12. TIZANIDINE 4MG [Concomitant]
     Active Substance: TIZANIDINE
  13. PRISTIQ EXTENDED?RELEASE [Concomitant]
     Active Substance: DESVENLAFAXINE SUCCINATE
  14. PERCOCET [Concomitant]
     Active Substance: ACETAMINOPHEN\OXYCODONE HYDROCHLORIDE
  15. PANTOPRAZOLE 40MG [Concomitant]
     Active Substance: PANTOPRAZOLE SODIUM

REACTIONS (4)
  - Tinnitus [Recovered/Resolved]
  - Movement disorder [Recovered/Resolved]
  - Vertigo [Recovered/Resolved]
  - Dysstasia [Recovered/Resolved]

NARRATIVE: CASE EVENT DATE: 20200621
